FAERS Safety Report 14848189 (Version 4)
Quarter: 2020Q2

REPORT INFORMATION
  Report Type: Other
  Country: CA (occurrence: CA)
  Receive Date: 20180504
  Receipt Date: 20200403
  Transmission Date: 20200713
  Serious: Yes (Disabling, Other)
  Sender: FDA-Public Use
  Company Number: CA-GLENMARK PHARMACEUTICALS-2018GMK034903

PATIENT

DRUGS (1)
  1. GABAPENTIN. [Suspect]
     Active Substance: GABAPENTIN
     Indication: ANXIETY
     Dosage: 300 MG, UNK
     Route: 048

REACTIONS (7)
  - Tinnitus [Unknown]
  - Off label use [Unknown]
  - Dizziness [Unknown]
  - Product use in unapproved indication [Unknown]
  - Ear discomfort [Unknown]
  - Vertigo [Unknown]
  - Ototoxicity [Unknown]
